FAERS Safety Report 7509203-0 (Version None)
Quarter: 2011Q2

REPORT INFORMATION
  Report Type: 
  Country: None (occurrence: None)
  Receive Date: 20110527
  Receipt Date: 20110512
  Transmission Date: 20111010
  Serious: Yes (Life-Threatening)
  Sender: FDA-Public Use
  Company Number: FR-JNJFOC-20110508086

PATIENT
  Age: 62 Year
  Sex: Male

DRUGS (2)
  1. DORIBAX [Suspect]
     Route: 041
     Dates: start: 20110512
  2. DORIBAX [Suspect]
     Indication: BACTERIAL DISEASE CARRIER
     Route: 041
     Dates: start: 20110511, end: 20110512

REACTIONS (1)
  - OVERDOSE [None]
